FAERS Safety Report 4457840-2 (Version None)
Quarter: 2004Q3

REPORT INFORMATION
  Report Type: 
  Country: None (occurrence: None)
  Receive Date: 20040924
  Receipt Date: 20040913
  Transmission Date: 20050211
  Serious: Yes (Death, Hospitalization, Other)
  Sender: FDA-Public Use
  Company Number: US-MERCK-0409USA01708

PATIENT
  Age: 21 Year
  Sex: Female

DRUGS (6)
  1. ACETAMINOPHEN AND TRAMADOL HYDROCHLORIDE [Suspect]
     Route: 065
  2. ELAVIL [Suspect]
     Route: 048
  3. FLEXERIL [Suspect]
     Route: 048
  4. OMEPRAZOLE [Suspect]
     Route: 048
  5. VIOXX [Suspect]
     Route: 048
  6. TIZANIDINE HYDROCHLORIDE [Suspect]
     Route: 048

REACTIONS (7)
  - AGGRESSION [None]
  - ASPIRATION [None]
  - COMPLETED SUICIDE [None]
  - DEPRESSED LEVEL OF CONSCIOUSNESS [None]
  - DRUG TOXICITY [None]
  - INTENTIONAL OVERDOSE [None]
  - VOMITING [None]
